FAERS Safety Report 12975205 (Version 1)
Quarter: 2016Q4

REPORT INFORMATION
  Report Type: Report from Study
  Country: CA (occurrence: CA)
  Receive Date: 20161125
  Receipt Date: 20161125
  Transmission Date: 20170207
  Serious: Yes (Hospitalization)
  Sender: FDA-Public Use
  Company Number: CA-ROCHE-1627299

PATIENT
  Age: 69 Year
  Sex: Female

DRUGS (8)
  1. ACTEMRA [Suspect]
     Active Substance: TOCILIZUMAB
     Indication: RHEUMATOID ARTHRITIS
     Route: 042
     Dates: start: 20150826, end: 20161019
  2. FOLIC ACID. [Concomitant]
     Active Substance: FOLIC ACID
  3. TYLENOL [Concomitant]
     Active Substance: ACETAMINOPHEN
     Route: 048
  4. PLAQUENIL [Concomitant]
     Active Substance: HYDROXYCHLOROQUINE SULFATE
     Route: 048
  5. ASPIRIN. [Concomitant]
     Active Substance: ASPIRIN
     Route: 048
  6. METHOTREXATE. [Concomitant]
     Active Substance: METHOTREXATE
  7. SULFASALAZINE. [Concomitant]
     Active Substance: SULFASALAZINE
  8. LIPITOR [Concomitant]
     Active Substance: ATORVASTATIN CALCIUM
     Route: 065

REACTIONS (18)
  - Infusion related reaction [Unknown]
  - Cough [Not Recovered/Not Resolved]
  - Blood pressure diastolic decreased [Unknown]
  - Guillain-Barre syndrome [Not Recovered/Not Resolved]
  - Muscle mass [Unknown]
  - Heart rate decreased [Unknown]
  - Sinus congestion [Not Recovered/Not Resolved]
  - Blood pressure increased [Unknown]
  - Hypoaesthesia [Recovering/Resolving]
  - Rhinorrhoea [Not Recovered/Not Resolved]
  - Dust allergy [Not Recovered/Not Resolved]
  - Fall [Unknown]
  - Drug ineffective [Unknown]
  - Contusion [Unknown]
  - Pain in extremity [Recovered/Resolved]
  - Blood pressure fluctuation [Unknown]
  - Blood pressure increased [Unknown]
  - Blood pressure systolic increased [Unknown]

NARRATIVE: CASE EVENT DATE: 20150826
